FAERS Safety Report 21217616 (Version 18)
Quarter: 2025Q1

REPORT INFORMATION
  Report Type: Report from Study
  Country: DE (occurrence: DE)
  Receive Date: 20220816
  Receipt Date: 20250311
  Transmission Date: 20250409
  Serious: Yes (Life-Threatening, Other)
  Sender: NOVARTIS
  Company Number: DE-NOVARTISPH-NVSC2020DE162883

PATIENT
  Sex: Female
  Weight: 73 kg

DRUGS (52)
  1. KISQALI [Suspect]
     Active Substance: RIBOCICLIB
     Indication: Hormone receptor positive HER2 negative breast cancer
     Dosage: 400 MG, QD (400 MG, QD (SCHEMA 21 DAYS INTAKE, THAN 7 DAYS PAUSE)  )
     Route: 048
     Dates: start: 20200704, end: 20200715
  2. KISQALI [Suspect]
     Active Substance: RIBOCICLIB
     Indication: Breast cancer metastatic
     Dosage: 400 MG, QD
     Route: 048
     Dates: start: 20200704, end: 20200715
  3. KISQALI [Suspect]
     Active Substance: RIBOCICLIB
     Route: 048
     Dates: start: 20200411, end: 20200525
  4. KISQALI [Suspect]
     Active Substance: RIBOCICLIB
     Route: 048
     Dates: start: 20200715
  5. KISQALI [Suspect]
     Active Substance: RIBOCICLIB
     Dosage: 400 MG, QD (SCHEMA 21 DAYS INTAKE, THAN 7 DAYS PAUSE)
     Route: 048
     Dates: start: 20200704, end: 20200715
  6. KISQALI [Suspect]
     Active Substance: RIBOCICLIB
     Route: 048
     Dates: end: 20200725
  7. KISQALI [Suspect]
     Active Substance: RIBOCICLIB
     Route: 048
     Dates: end: 20200525
  8. KISQALI [Suspect]
     Active Substance: RIBOCICLIB
     Route: 048
     Dates: start: 20200715
  9. FULVESTRANT [Suspect]
     Active Substance: FULVESTRANT
     Indication: Hormone receptor positive HER2 negative breast cancer
     Dosage: 500 MG, Q4W (500 MG, Q4W (DAILY DOSE) (LAST ADMIISTARTION DOSE DATE WAS 02 JUL 2020))
     Route: 030
     Dates: start: 20200411, end: 20200702
  10. FULVESTRANT [Suspect]
     Active Substance: FULVESTRANT
     Indication: Breast cancer metastatic
     Dosage: 500 MG, Q4W (500 MG, Q4W (DAILY DOSE) (LAST ADMINISTRATION DOSE DATE WAS 02JUL2020))
     Route: 030
     Dates: end: 20200702
  11. FULVESTRANT [Suspect]
     Active Substance: FULVESTRANT
     Dosage: 500 MG (500 MG, Q4W (DAILY DOSE) (LAST ADMINISTRATION DOSE DATE WAS 02JUL2020))
     Route: 030
     Dates: start: 20200702
  12. FULVESTRANT [Suspect]
     Active Substance: FULVESTRANT
     Dosage: 500 MG, Q4W
     Route: 030
     Dates: start: 20200715, end: 20200715
  13. FULVESTRANT [Suspect]
     Active Substance: FULVESTRANT
     Route: 030
     Dates: end: 20200715
  14. FULVESTRANT [Suspect]
     Active Substance: FULVESTRANT
     Dosage: 500 MG, EVERY 4 WEEKS, START DATE; 15-JUL-2020
     Route: 030
  15. FULVESTRANT [Suspect]
     Active Substance: FULVESTRANT
     Dosage: 500 MG, EVERY 4 WEEKS, START DATE: 15-JUL-2021
     Route: 065
  16. FULVESTRANT [Suspect]
     Active Substance: FULVESTRANT
     Route: 065
     Dates: start: 20210715, end: 20210715
  17. FULVESTRANT [Suspect]
     Active Substance: FULVESTRANT
     Route: 030
     Dates: start: 20210715, end: 20210715
  18. FULVESTRANT [Suspect]
     Active Substance: FULVESTRANT
     Route: 065
     Dates: start: 20200715
  19. PALBOCICLIB [Suspect]
     Active Substance: PALBOCICLIB
     Indication: Breast cancer metastatic
     Dosage: 125 MG, QD
     Route: 048
     Dates: start: 20200801, end: 20200821
  20. PALBOCICLIB [Suspect]
     Active Substance: PALBOCICLIB
     Indication: Hormone receptor positive HER2 negative breast cancer
     Dosage: 100 MG, QD (DAILY DOSE)
     Route: 048
     Dates: start: 20200912, end: 20210624
  21. PALBOCICLIB [Suspect]
     Active Substance: PALBOCICLIB
     Indication: Breast cancer metastatic
     Dosage: 100 MG, QD (DAILY DOSE)
     Route: 048
     Dates: start: 20210702, end: 20210729
  22. PALBOCICLIB [Suspect]
     Active Substance: PALBOCICLIB
     Dosage: 75 MG, QD (DAILY DOSE)
     Route: 048
     Dates: start: 20210806, end: 20240808
  23. PALBOCICLIB [Suspect]
     Active Substance: PALBOCICLIB
     Dosage: 125 MG, QD, START DATE: 01-AUG-2020, CYCLIC (FROM 01 AUG 2020, 21 DAYS INTAKE, 7 DAYS PAUSE)
     Route: 048
     Dates: end: 20200821
  24. PALBOCICLIB [Suspect]
     Active Substance: PALBOCICLIB
     Dosage: 100 MG, CYCLIC, START DATE: 12-SEP-2020 (QD, 21 DAYS INTAKE, 7 DAYS PAUSE)
     Route: 048
     Dates: end: 20210624
  25. PALBOCICLIB [Suspect]
     Active Substance: PALBOCICLIB
     Route: 048
     Dates: end: 20210624
  26. PALBOCICLIB [Suspect]
     Active Substance: PALBOCICLIB
     Dosage: 100 MG,QD, CYCLIC, START DATE: 02-JUL-2021 (SCHEMA 21 DAYS INTAKE, 7 DAYS PAUSE)
     Route: 048
     Dates: end: 20210729
  27. PALBOCICLIB [Suspect]
     Active Substance: PALBOCICLIB
     Route: 048
     Dates: end: 20210729
  28. PALBOCICLIB [Suspect]
     Active Substance: PALBOCICLIB
     Dosage: 125 MG, CYCLIC, START DATE:06-AUG-2021 (ONCE A DAY, SCHEMA 21 DAYS INTAKE, 7 DAYS PAUSE)
     Route: 048
  29. PALBOCICLIB [Suspect]
     Active Substance: PALBOCICLIB
     Dosage: 75 MG, QD,CYCLIC, START DATE: 06-AUG-2021 (SCHEMA 21 DAYS INTAKE, 7 DAYS PAUSE)
     Route: 048
     Dates: end: 20210808
  30. CANDESARTAN [Concomitant]
     Active Substance: CANDESARTAN
     Indication: Hypertension
     Dosage: 16 MG, QD (ONCE IN THE MORNING)
     Route: 048
     Dates: start: 20200411, end: 20200525
  31. CANDESARTAN [Concomitant]
     Active Substance: CANDESARTAN
     Dosage: 16 MG, QD (ONCE IN THE MORNING)
     Route: 048
     Dates: start: 20190815, end: 20200525
  32. CANDESARTAN [Concomitant]
     Active Substance: CANDESARTAN
     Dosage: 16 MG, QD (16 MG, QD (ONCE IN THE MORNING))
     Route: 048
     Dates: start: 20190815, end: 20200525
  33. CANDESARTAN [Concomitant]
     Active Substance: CANDESARTAN
     Dosage: 16 MG, QD (ONCE IN THE MORNING)
     Route: 048
     Dates: start: 20200411, end: 20200525
  34. CANDESARTAN [Concomitant]
     Active Substance: CANDESARTAN
     Dosage: 16 MG, QD (ONCE IN THE MORNING)
     Route: 048
     Dates: start: 20190815, end: 20200525
  35. CANDESARTAN [Concomitant]
     Active Substance: CANDESARTAN
     Dosage: 16 MG, QD (ONCE IN THE MORNING)
     Route: 048
     Dates: start: 20190815, end: 20200525
  36. CANDESARTAN [Concomitant]
     Active Substance: CANDESARTAN
     Dosage: UNK (16 MG, QD (ONCE IN THE MORNING))
     Route: 048
     Dates: start: 20200411, end: 20200525
  37. CANDESARTAN [Concomitant]
     Active Substance: CANDESARTAN
     Dosage: 16 MG, QD (ONCE IN THE MORNING)
     Route: 048
     Dates: start: 20200411, end: 20200525
  38. ZOMETA [Concomitant]
     Active Substance: ZOLEDRONIC ACID
     Indication: Product used for unknown indication
     Dosage: 4 MG, CYCLIC, (EVERY 4 WEEKS)
     Route: 042
     Dates: start: 20200411, end: 20200525
  39. ZOMETA [Concomitant]
     Active Substance: ZOLEDRONIC ACID
     Route: 042
     Dates: start: 20200411, end: 20200525
  40. ZOMETA [Concomitant]
     Active Substance: ZOLEDRONIC ACID
     Route: 042
     Dates: start: 20200411, end: 20200525
  41. LEVOTHYROXINE [Concomitant]
     Active Substance: LEVOTHYROXINE
     Indication: Hypothyroidism
     Route: 048
     Dates: start: 20200411, end: 20200525
  42. LEVOTHYROXINE [Concomitant]
     Active Substance: LEVOTHYROXINE
     Route: 048
     Dates: start: 20200914
  43. LEVOTHYROXINE [Concomitant]
     Active Substance: LEVOTHYROXINE
     Route: 048
     Dates: start: 20200411, end: 20200525
  44. LEVOTHYROXINE [Concomitant]
     Active Substance: LEVOTHYROXINE
     Route: 048
     Dates: start: 20200914
  45. LEVOTHYROXINE [Concomitant]
     Active Substance: LEVOTHYROXINE
     Route: 048
     Dates: start: 20200411, end: 20200525
  46. LEVOTHYROXINE [Concomitant]
     Active Substance: LEVOTHYROXINE
     Route: 048
     Dates: start: 20200411, end: 20200525
  47. LEVOTHYROXINE [Concomitant]
     Active Substance: LEVOTHYROXINE
     Route: 048
     Dates: start: 20200411, end: 20200525
  48. LEVOTHYROXINE [Concomitant]
     Active Substance: LEVOTHYROXINE
     Route: 048
     Dates: start: 20200411, end: 20200525
  49. LEVOTHYROXINE [Concomitant]
     Active Substance: LEVOTHYROXINE
     Route: 048
     Dates: start: 20200411, end: 20200525
  50. LEVOTHYROXINE [Concomitant]
     Active Substance: LEVOTHYROXINE
     Route: 048
     Dates: start: 20200914
  51. LEVOTHYROXINE [Concomitant]
     Active Substance: LEVOTHYROXINE
     Route: 048
     Dates: start: 20200411, end: 20200525
  52. LEVOTHYROXINE [Concomitant]
     Active Substance: LEVOTHYROXINE
     Route: 048
     Dates: start: 20200914

REACTIONS (17)
  - Neutropenia [Recovered/Resolved]
  - Neutropenia [Recovered/Resolved]
  - Neutropenia [Recovered/Resolved]
  - Neutropenia [Recovered/Resolved]
  - Neutropenia [Recovered/Resolved]
  - Neutropenia [Recovered/Resolved]
  - Neutropenia [Recovered/Resolved]
  - Thrombocytopenia [Recovered/Resolved]
  - Joint stiffness [Not Recovered/Not Resolved]
  - Pulpitis dental [Recovered/Resolved]
  - Diarrhoea [Recovered/Resolved]
  - Dyspepsia [Not Recovered/Not Resolved]
  - Abdominal pain [Recovered/Resolved]
  - Fatigue [Not Recovered/Not Resolved]
  - Back pain [Not Recovered/Not Resolved]
  - Aspartate aminotransferase increased [Recovered/Resolved]
  - Alanine aminotransferase increased [Recovered/Resolved]

NARRATIVE: CASE EVENT DATE: 20200522
